FAERS Safety Report 16592166 (Version 1)
Quarter: 2019Q3

REPORT INFORMATION
  Report Type: Spontaneous
  Country: CA (occurrence: CA)
  Receive Date: 20190718
  Receipt Date: 20190718
  Transmission Date: 20191004
  Serious: Yes (Disabling)
  Sender: FDA-Public Use
  Company Number: CA-PFIZER INC-2019304471

PATIENT
  Age: 34 Year
  Sex: Female
  Weight: 64 kg

DRUGS (5)
  1. BETADERM [Concomitant]
     Active Substance: BETAMETHASONE VALERATE
     Dosage: UNK
  2. NASONEX [Concomitant]
     Active Substance: MOMETASONE FUROATE
     Dosage: UNK
  3. SERTRALINE HCL [Suspect]
     Active Substance: SERTRALINE HYDROCHLORIDE
     Indication: GENERALISED ANXIETY DISORDER
     Dosage: 25 MG, 1X/DAY
     Route: 048
  4. CICLOPIROX OLAMINE. [Concomitant]
     Active Substance: CICLOPIROX OLAMINE
     Dosage: UNK
  5. TRIQUILAR28 [Concomitant]
     Dosage: UNK

REACTIONS (3)
  - Apathy [Recovered/Resolved]
  - Anhedonia [Recovered/Resolved]
  - Drug ineffective [Recovered/Resolved]
